FAERS Safety Report 5881183-3 (Version None)
Quarter: 2008Q3

REPORT INFORMATION
  Report Type: 
  Country: None (occurrence: None)
  Receive Date: 20080912
  Receipt Date: 20080620
  Transmission Date: 20090109
  Serious: No
  Sender: FDA-Public Use
  Company Number: US-ABBOTT-08P-163-0459056-00

PATIENT
  Sex: Female
  Weight: 60.836 kg

DRUGS (1)
  1. HUMIRA [Suspect]
     Indication: UVEITIS
     Route: 058
     Dates: start: 20080403, end: 20080515

REACTIONS (7)
  - ARTHROPOD BITE [None]
  - BLOOD CREATININE INCREASED [None]
  - EXCORIATION [None]
  - FALL [None]
  - INFECTED BITES [None]
  - PHARYNGITIS STREPTOCOCCAL [None]
  - RENAL IMPAIRMENT [None]
